FAERS Safety Report 17721478 (Version 1)
Quarter: 2020Q2

REPORT INFORMATION
  Report Type: Spontaneous
  Country: DE (occurrence: DE)
  Receive Date: 20200429
  Receipt Date: 20200429
  Transmission Date: 20200714
  Serious: Yes (Hospitalization)
  Sender: FDA-Public Use
  Company Number: DE-TEVA-2020-DE-1227028

PATIENT
  Age: 46 Year
  Sex: Male
  Weight: 63 kg

DRUGS (6)
  1. DOXORUBICIN [Suspect]
     Active Substance: DOXORUBICIN
     Dosage: ACCORDING TO THE SCHEME
     Route: 042
  2. PANTOPRAZOL [Suspect]
     Active Substance: PANTOPRAZOLE SODIUM
     Dosage: 80 MILLIGRAM DAILY; 1-0-0-1
     Route: 048
  3. METOCLOPRAMID [Suspect]
     Active Substance: METOCLOPRAMIDE
     Dosage: 10 MG, AS NEEDED
     Route: 048
  4. ONDANSETRON [Suspect]
     Active Substance: ONDANSETRON
     Dosage: 16 MILLIGRAM DAILY; 4 MG, 2-0-2-0
     Route: 048
  5. VINCRISTIN [Suspect]
     Active Substance: VINCRISTINE
     Dosage: ACCORDING TO THE SCHEME
     Route: 042
  6. CYCLOPHOSPHAMID [Suspect]
     Active Substance: CYCLOPHOSPHAMIDE
     Dosage: ACCORDING TO THE SCHEME
     Route: 042

REACTIONS (3)
  - Medication error [Unknown]
  - Decreased appetite [Unknown]
  - General physical health deterioration [Unknown]
